FAERS Safety Report 9746012 (Version 1)
Quarter: 2013Q4

REPORT INFORMATION
  Report Type: Spontaneous
  Country: MX (occurrence: MX)
  Receive Date: 20131211
  Receipt Date: 20131211
  Transmission Date: 20140711
  Serious: Yes (Other)
  Sender: FDA-Public Use
  Company Number: PHHY2013MX144989

PATIENT
  Age: 72 Year
  Sex: Female
  Weight: 66 kg

DRUGS (2)
  1. EXFORGE [Suspect]
     Indication: HYPERTENSION
     Dosage: 1 TABLET (160/10 MG), DAILY
     Route: 048
     Dates: start: 2011
  2. EXFORGE [Suspect]
     Dosage: 0.5 TABLET (160/10 MG), DAILY
     Route: 048

REACTIONS (3)
  - Glaucoma [Not Recovered/Not Resolved]
  - Feeling abnormal [Unknown]
  - Wrong technique in drug usage process [Not Recovered/Not Resolved]
